FAERS Safety Report 15702848 (Version 1)
Quarter: 2018Q4

REPORT INFORMATION
  Report Type: Spontaneous
  Country: US (occurrence: US)
  Receive Date: 20181210
  Receipt Date: 20181210
  Transmission Date: 20190205
  Serious: Yes (Other)
  Sender: FDA-Public Use
  Company Number: None

PATIENT
  Age: 43 Year
  Sex: Female
  Weight: 122.47 kg

DRUGS (8)
  1. IBUPROFEN. [Concomitant]
     Active Substance: IBUPROFEN
  2. MULTIVITAMIN [Concomitant]
     Active Substance: VITAMINS
  3. ROBAXIN [Concomitant]
     Active Substance: METHOCARBAMOL
  4. TYLENOL [Concomitant]
     Active Substance: ACETAMINOPHEN
  5. TYLENOL WITH CODEINE [Concomitant]
     Active Substance: ACETAMINOPHEN\CODEINE PHOSPHATE
  6. WELLBUTRIN [Concomitant]
     Active Substance: BUPROPION HYDROCHLORIDE
  7. CHLORAPREP [Suspect]
     Active Substance: CHLORHEXIDINE GLUCONATE\ISOPROPYL ALCOHOL
  8. MAXALT [Concomitant]
     Active Substance: RIZATRIPTAN BENZOATE

REACTIONS (2)
  - Skin weeping [None]
  - Application site burn [None]

NARRATIVE: CASE EVENT DATE: 20180628
